FAERS Safety Report 16314389 (Version 1)
Quarter: 2019Q2

REPORT INFORMATION
  Report Type: Spontaneous
  Country: US (occurrence: US)
  Receive Date: 20190409
  Receipt Date: 20190409
  Transmission Date: 20190711
  Serious: Yes (Other)
  Sender: FDA-Public Use
  Company Number: None

PATIENT
  Age: 78 Year
  Sex: Female
  Weight: 63.05 kg

DRUGS (2)
  1. TRIMETHOPRIN [Concomitant]
  2. PRAVASTATIN SODIUM 20MG TABS TEVA PHARMACEUTICALS [Suspect]
     Active Substance: PRAVASTATIN SODIUM
     Indication: BLOOD CHOLESTEROL
     Dosage: ?          QUANTITY:1 DF DOSAGE FORM;?
     Route: 048
     Dates: start: 20190115, end: 20190304

REACTIONS (4)
  - Gait inability [None]
  - Weight bearing difficulty [None]
  - Pain in extremity [None]
  - Product substitution issue [None]

NARRATIVE: CASE EVENT DATE: 20190116
